FAERS Safety Report 20983210 (Version 2)
Quarter: 2022Q2

REPORT INFORMATION
  Report Type: Spontaneous
  Country: US (occurrence: US)
  Receive Date: 20220620
  Receipt Date: 20220628
  Transmission Date: 20220721
  Serious: No
  Sender: FDA-Public Use
  Company Number: US-PROPHARMA-188

PATIENT
  Age: 72 Year
  Sex: Female

DRUGS (1)
  1. AYVAKIT [Suspect]
     Active Substance: AVAPRITINIB
     Indication: Systemic mastocytosis
     Route: 048
     Dates: start: 20220211

REACTIONS (7)
  - Balance disorder [Unknown]
  - Weight decreased [Unknown]
  - Dizziness [Unknown]
  - Taste disorder [Unknown]
  - Lacrimation increased [Unknown]
  - Nausea [Unknown]
  - Decreased appetite [Unknown]
